FAERS Safety Report 10727507 (Version 4)
Quarter: 2015Q3

REPORT INFORMATION
  Report Type: Spontaneous
  Country: US (occurrence: US)
  Receive Date: 20150121
  Receipt Date: 20150924
  Transmission Date: 20151125
  Serious: No
  Sender: FDA-Public Use
  Company Number: US-INCYTE CORPORATION-2015IN000178

PATIENT
  Age: 69 Year
  Sex: Female
  Weight: 85.71 kg

DRUGS (14)
  1. DIOVAN [Concomitant]
     Active Substance: VALSARTAN
     Dosage: 80 MG
  2. ALBUTEROL                          /00139501/ [Concomitant]
     Active Substance: ALBUTEROL
     Dosage: 0.083%
  3. PLAVIX [Concomitant]
     Active Substance: CLOPIDOGREL BISULFATE
     Dosage: 75 MG
  4. HYDROCHLOROTHIAZIDE. [Concomitant]
     Active Substance: HYDROCHLOROTHIAZIDE
  5. DILTIAZEM [Concomitant]
     Active Substance: DILTIAZEM
     Dosage: 30 MG
  6. MORPHINE SULFATE. [Concomitant]
     Active Substance: MORPHINE SULFATE
     Dosage: 30 MG
  7. OMEPRAZOLE. [Concomitant]
     Active Substance: OMEPRAZOLE
     Dosage: 20 MG
  8. MORPHINE SULFATE. [Concomitant]
     Active Substance: MORPHINE SULFATE
     Dosage: 60 MG
  9. ALPRAZOLAM. [Concomitant]
     Active Substance: ALPRAZOLAM
     Dosage: 0.5 MG
  10. JAKAFI [Suspect]
     Active Substance: RUXOLITINIB
     Indication: ESSENTIAL THROMBOCYTHAEMIA
     Dosage: 10 MG, BID
     Route: 048
     Dates: start: 20141030, end: 20150126
  11. SERTRALINE [Concomitant]
     Active Substance: SERTRALINE HYDROCHLORIDE
     Dosage: 100 MG
  12. NITROSTAT [Concomitant]
     Active Substance: NITROGLYCERIN
     Dosage: 0.4 MG
  13. JAKAFI [Suspect]
     Active Substance: RUXOLITINIB
     Indication: OFF LABEL USE
  14. DILTIAZEM [Concomitant]
     Active Substance: DILTIAZEM
     Dosage: 60 MG

REACTIONS (4)
  - Weight increased [Unknown]
  - Off label use [Unknown]
  - Flatulence [Unknown]
  - Chest pain [Unknown]

NARRATIVE: CASE EVENT DATE: 201411
